FAERS Safety Report 20226889 (Version 3)
Quarter: 2022Q1

REPORT INFORMATION
  Report Type: Spontaneous
  Country: MA (occurrence: None)
  Receive Date: 20211224
  Receipt Date: 20220127
  Transmission Date: 20220423
  Serious: Yes (Hospitalization, Other)
  Sender: FDA-Public Use
  Company Number: MA-ROCHE-2975161

PATIENT
  Age: 73 Year
  Sex: Female

DRUGS (2)
  1. GAZYVA [Suspect]
     Active Substance: OBINUTUZUMAB
     Indication: Product used for unknown indication
     Route: 042
  2. CHLORPHENIRAMINE [Suspect]
     Active Substance: CHLORPHENIRAMINE
     Indication: Product used for unknown indication
     Route: 065

REACTIONS (23)
  - COVID-19 [Unknown]
  - Neutropenia [Unknown]
  - Pyrexia [Unknown]
  - Influenza like illness [Unknown]
  - Asthenia [Unknown]
  - Cytopenia [Unknown]
  - Unevaluable event [Unknown]
  - Anaemia [Unknown]
  - Pallor [Unknown]
  - Lymphadenopathy [Unknown]
  - Ill-defined disorder [Unknown]
  - Swelling [Unknown]
  - Anaemia [Unknown]
  - Hyperleukocytosis [Unknown]
  - White blood cell count increased [Unknown]
  - Cytogenetic abnormality [Unknown]
  - Diabetes mellitus [Unknown]
  - Hypertension [Unknown]
  - Chronic lymphocytic leukaemia [Unknown]
  - Lymphadenopathy [Unknown]
  - Lymphadenopathy [Unknown]
  - Ill-defined disorder [Unknown]
  - Thrombocytopenia [Unknown]
